FAERS Safety Report 17105023 (Version 1)
Quarter: 2019Q4

REPORT INFORMATION
  Report Type: Spontaneous
  Country: US (occurrence: US)
  Receive Date: 20191108
  Receipt Date: 20191108
  Transmission Date: 20200122
  Serious: No
  Sender: FDA-Public Use
  Company Number: None

PATIENT
  Age: 18 Year
  Sex: Male

DRUGS (4)
  1. NORDITROPIN [Suspect]
     Active Substance: SOMATROPIN
     Indication: BODY HEIGHT BELOW NORMAL
     Route: 058
     Dates: start: 20161006
  2. REMICADE [Concomitant]
     Active Substance: INFLIXIMAB
  3. PRILOSEC [Concomitant]
     Active Substance: OMEPRAZOLE MAGNESIUM
  4. IRON SUPPLEMENT [Concomitant]
     Active Substance: IRON

REACTIONS (2)
  - Acne [None]
  - Alopecia [None]

NARRATIVE: CASE EVENT DATE: 20191101
